FAERS Safety Report 7582315-1 (Version None)
Quarter: 2011Q2

REPORT INFORMATION
  Report Type: 
  Country: None (occurrence: None)
  Receive Date: 20110527
  Receipt Date: 20101013
  Transmission Date: 20111010
  Serious: Yes (Hospitalization)
  Sender: FDA-Public Use
  Company Number: US200903003312

PATIENT
  Age: 59 Year
  Sex: Female
  Weight: 127 kg

DRUGS (14)
  1. BYETTA [Suspect]
     Dosage: 5 UG
     Dates: start: 20080101, end: 20080901
  2. BYETTA [Suspect]
     Dosage: 5 UG
     Dates: start: 20060526, end: 20070823
  3. CRESTOR [Concomitant]
  4. HYZAAR [Concomitant]
  5. EXENATIDE PEN, DISPOSABLE DEVICE (EXENATIDE PEN) PEN,  DISPOSABLE [Concomitant]
  6. LOVENOX [Concomitant]
  7. AZITHROMYCIN [Concomitant]
  8. DIURETICS [Concomitant]
  9. ASPIRIN [Concomitant]
  10. POTASSIUM (POTASSIUM) [Concomitant]
  11. LIPITOR [Concomitant]
  12. SIMVASTATIN [Concomitant]
  13. TEMAZEPAM [Concomitant]
  14. INSULIN (INSULIN) [Concomitant]

REACTIONS (6)
  - HEADACHE [None]
  - OFF LABEL USE [None]
  - EMOTIONAL DISTRESS [None]
  - PANCREATITIS [None]
  - RENAL FAILURE CHRONIC [None]
  - ABDOMINAL PAIN UPPER [None]
